FAERS Safety Report 16468656 (Version 1)
Quarter: 2019Q3

REPORT INFORMATION
  Report Type: Spontaneous
  Country: US (occurrence: US)
  Receive Date: 20190621
  Receipt Date: 20190621
  Transmission Date: 20191004
  Serious: Yes (Hospitalization)
  Sender: FDA-Public Use
  Company Number: None

PATIENT
  Sex: Female

DRUGS (8)
  1. OFLOXACIN. [Concomitant]
     Active Substance: OFLOXACIN
  2. AMLODIPINE [Concomitant]
     Active Substance: AMLODIPINE BESYLATE
  3. DORZOLAMIDE [Concomitant]
     Active Substance: DORZOLAMIDE
  4. PREDNISOLONE. [Concomitant]
     Active Substance: PREDNISOLONE
  5. OMEPRAZOLE. [Concomitant]
     Active Substance: OMEPRAZOLE
  6. CINACALCET. [Suspect]
     Active Substance: CINACALCET
     Indication: HYPERPARATHYROIDISM
     Route: 048
     Dates: start: 20190415
  7. CARVEDILOL. [Concomitant]
     Active Substance: CARVEDILOL
  8. TIMOLOL. [Concomitant]
     Active Substance: TIMOLOL

REACTIONS (3)
  - Coma [None]
  - Surgery [None]
  - Adverse drug reaction [None]
